FAERS Safety Report 20639169 (Version 1)
Quarter: 2022Q1

REPORT INFORMATION
  Report Type: Report from Study
  Country: US (occurrence: US)
  Receive Date: 20220326
  Receipt Date: 20220326
  Transmission Date: 20220423
  Serious: Yes (Hospitalization, Other)
  Sender: FDA-Public Use
  Company Number: US-TAKEDA-2022TUS018931

PATIENT
  Age: 58 Year
  Sex: Female

DRUGS (8)
  1. TEDUGLUTIDE [Suspect]
     Active Substance: TEDUGLUTIDE
     Indication: Short-bowel syndrome
     Dosage: 2.300 MILLIGRAM, QD
     Route: 042
     Dates: start: 202005
  2. TEDUGLUTIDE [Suspect]
     Active Substance: TEDUGLUTIDE
     Indication: Short-bowel syndrome
     Dosage: 2.300 MILLIGRAM, QD
     Route: 042
     Dates: start: 202005
  3. TEDUGLUTIDE [Suspect]
     Active Substance: TEDUGLUTIDE
     Indication: Short-bowel syndrome
     Dosage: 2.300 MILLIGRAM, QD
     Route: 042
     Dates: start: 202005
  4. TEDUGLUTIDE [Suspect]
     Active Substance: TEDUGLUTIDE
     Indication: Short-bowel syndrome
     Dosage: 2.300 MILLIGRAM, QD
     Route: 042
     Dates: start: 202005
  5. CLOTRIMAZOLE [Concomitant]
     Active Substance: CLOTRIMAZOLE
     Indication: Rectal haemorrhage
     Dosage: 30.00 GRAM, QD
     Route: 061
     Dates: start: 20220308
  6. PANCRELIPASE [Concomitant]
     Active Substance: PANCRELIPASE
     Indication: Short-bowel syndrome
     Dosage: 76000.00 INTERNATIONAL UNIT
     Route: 048
     Dates: start: 20220302
  7. PEPCID [Concomitant]
     Active Substance: FAMOTIDINE
     Indication: Diarrhoea
     Dosage: 20.00 MILLIGRAM
     Route: 048
     Dates: start: 20220302
  8. ESCITALOPRAM [Concomitant]
     Active Substance: ESCITALOPRAM OXALATE
     Indication: Depression
     Dosage: 20.00 MILLIGRAM, QD
     Route: 048
     Dates: start: 20211129

REACTIONS (2)
  - Rectal haemorrhage [Recovered/Resolved]
  - Skin abrasion [Recovered/Resolved]

NARRATIVE: CASE EVENT DATE: 20220308
